FAERS Safety Report 8310776-9 (Version None)
Quarter: 2012Q2

REPORT INFORMATION
  Report Type: 
  Country: None (occurrence: None)
  Receive Date: 20120425
  Receipt Date: 20120412
  Transmission Date: 20120825
  Serious: Yes (Other)
  Sender: FDA-Public Use
  Company Number: AU-COVIDIEN/TYCO HEALTHCARE/MALLINCKRODT-T201201487

PATIENT
  Sex: Female

DRUGS (1)
  1. EXALGO [Suspect]
     Indication: PAIN
     Dosage: 24 MG (16MG + 8 MG)
     Route: 048
     Dates: start: 20120101, end: 20120217

REACTIONS (2)
  - WEIGHT INCREASED [None]
  - SOMNOLENCE [None]
